FAERS Safety Report 13864807 (Version 2)
Quarter: 2017Q3

REPORT INFORMATION
  Report Type: Report from Study
  Country: US (occurrence: US)
  Receive Date: 20170814
  Receipt Date: 20170912
  Transmission Date: 20171127
  Serious: Yes (Death)
  Sender: FDA-Public Use
  Company Number: US-PFIZER INC-2017342825

PATIENT
  Age: 68 Year
  Sex: Male

DRUGS (1)
  1. COPPER CHLORIDE [Suspect]
     Active Substance: CUPRIC CHLORIDE
     Dosage: UNK

REACTIONS (7)
  - Gastrointestinal haemorrhage [Fatal]
  - Methaemoglobinaemia [Fatal]
  - Leukocytosis [Fatal]
  - Chemical burn [Fatal]
  - Acute kidney injury [Fatal]
  - Toxicity to various agents [Fatal]
  - Hypotension [Fatal]
